FAERS Safety Report 24216499 (Version 1)
Quarter: 2024Q3

REPORT INFORMATION
  Report Type: Spontaneous
  Country: GB (occurrence: GB)
  Receive Date: 20240816
  Receipt Date: 20240816
  Transmission Date: 20241017
  Serious: Yes (Other)
  Sender: RANBAXY
  Company Number: GB-MHRA-MED-202408021930281890-FPRZV

PATIENT
  Age: 44 Year

DRUGS (1)
  1. CIPROFLOXACIN [Suspect]
     Active Substance: CIPROFLOXACIN
     Indication: Tooth infection
     Dosage: 500 MILLIGRAM BD
     Route: 048

REACTIONS (1)
  - Cystoid macular oedema [Recovering/Resolving]

NARRATIVE: CASE EVENT DATE: 20240710
